FAERS Safety Report 24328886 (Version 1)
Quarter: 2024Q3

REPORT INFORMATION
  Report Type: Report from Study
  Country: US (occurrence: None)
  Receive Date: 20240917
  Receipt Date: 20240917
  Transmission Date: 20241016
  Serious: Yes (Hospitalization)
  Sender: ASTRAZENECA
  Company Number: 2024A210620

PATIENT
  Sex: Female

DRUGS (2)
  1. FASENRA [Suspect]
     Active Substance: BENRALIZUMAB
     Indication: Chronic obstructive pulmonary disease
     Route: 058
     Dates: start: 202309
  2. FASENRA [Suspect]
     Active Substance: BENRALIZUMAB
     Indication: Pulmonary fibrosis
     Route: 058
     Dates: start: 202309

REACTIONS (4)
  - Atrial fibrillation [Unknown]
  - Hydronephrosis [Unknown]
  - Cardiac disorder [Unknown]
  - Pulmonary oedema [Unknown]
